FAERS Safety Report 9012724 (Version 1)
Quarter: 2013Q1

REPORT INFORMATION
  Report Type: Spontaneous
  Country: NL (occurrence: NL)
  Receive Date: 20130114
  Receipt Date: 20130114
  Transmission Date: 20140127
  Serious: Yes (Hospitalization)
  Sender: FDA-Public Use
  Company Number: NL-TEVA-379692ISR

PATIENT
  Sex: Male
  Weight: 90 kg

DRUGS (10)
  1. METHOTREXAAT [Suspect]
     Indication: PSORIATIC ARTHROPATHY
     Route: 048
     Dates: start: 200701
  2. ADALIMUMAB [Suspect]
     Indication: PSORIATIC ARTHROPATHY
     Route: 058
     Dates: start: 200604
  3. GLIMEPIRIDE TABLET 1MG [Concomitant]
     Dosage: 1 MILLIGRAM DAILY;
     Route: 048
     Dates: start: 2010
  4. METFORMINE TABLET  500MG [Concomitant]
     Dosage: 1500 MILLIGRAM DAILY;
     Route: 048
     Dates: start: 2007
  5. LISINOPRIL TABLET 20MG [Concomitant]
     Dosage: 20 MILLIGRAM DAILY;
     Route: 048
     Dates: start: 2007
  6. AMLODIPINE TABLET 10MG (BESILAAT) [Concomitant]
     Dosage: 10 MILLIGRAM DAILY;
     Route: 048
     Dates: start: 2010
  7. ROSUVASTATINE TABLET FO 20MG [Concomitant]
     Dosage: 20 MILLIGRAM DAILY;
     Route: 048
  8. OMEPRAZOL CAPSULE MGA 20MG [Concomitant]
     Dosage: 20 MILLIGRAM DAILY;
     Route: 048
  9. NEOTIGASON CAPSULE 10MG [Concomitant]
     Route: 048
     Dates: start: 2010
  10. TAMSULOSINE TABLET MGA 0.4MG [Concomitant]
     Dosage: .4 MILLIGRAM DAILY;
     Route: 048
     Dates: start: 2011

REACTIONS (1)
  - Transitional cell carcinoma [Recovering/Resolving]
